FAERS Safety Report 24670800 (Version 1)
Quarter: 2024Q4

REPORT INFORMATION
  Report Type: Report from Study
  Country: CZ (occurrence: CZ)
  Receive Date: 20241127
  Receipt Date: 20241127
  Transmission Date: 20250114
  Serious: Yes (Other)
  Sender: SUNOVION
  Company Number: CZ-UCBSA-2022056285

PATIENT

DRUGS (6)
  1. ESLICARBAZEPINE ACETATE [Suspect]
     Active Substance: ESLICARBAZEPINE ACETATE
     Indication: Epilepsy
     Dosage: 1200 MILLIGRAM, ONCE DAILY (QD)
     Route: 048
     Dates: start: 20220310
  2. BRIVARACETAM [Suspect]
     Active Substance: BRIVARACETAM
     Indication: Epilepsy
     Dosage: 50 MILLIGRAM, 2X/DAY (BID) 2 TABLETS IN THE MORNING AND 2 TABLETS AT NIGHT
     Route: 048
  3. BRIVARACETAM [Suspect]
     Active Substance: BRIVARACETAM
     Indication: Focal dyscognitive seizures
     Dosage: 100 MILLIGRAM, 2X/DAY (BID)
     Route: 048
     Dates: start: 20220525, end: 20220807
  4. CLOBAZAM [Suspect]
     Active Substance: CLOBAZAM
     Indication: Epilepsy
     Dosage: 10 MILLIGRAM, ONCE DAILY (QD)
     Route: 048
     Dates: start: 20220126, end: 20220720
  5. CLOBAZAM [Suspect]
     Active Substance: CLOBAZAM
     Dosage: 10 MILLIGRAM, BID
     Route: 048
     Dates: start: 20220721
  6. ZONEGRAN [Suspect]
     Active Substance: ZONISAMIDE
     Indication: Epilepsy
     Dosage: 200 MILLIGRAM, 2X/DAY (BID)
     Route: 048
     Dates: start: 20160519

REACTIONS (9)
  - Seizure [Recovered/Resolved]
  - Behaviour disorder [Recovered/Resolved]
  - Altered state of consciousness [Recovered/Resolved]
  - Muscle twitching [Unknown]
  - Intermittent explosive disorder [Recovered/Resolved]
  - Affective disorder [Recovered/Resolved]
  - Amnesia [Unknown]
  - Fatigue [Recovered/Resolved]
  - Agitation [Not Recovered/Not Resolved]

NARRATIVE: CASE EVENT DATE: 20220525
